FAERS Safety Report 18947044 (Version 5)
Quarter: 2021Q2

REPORT INFORMATION
  Report Type: Spontaneous
  Country: JP (occurrence: JP)
  Receive Date: 20210226
  Receipt Date: 20210622
  Transmission Date: 20210717
  Serious: Yes (Hospitalization, Other)
  Sender: FDA-Public Use
  Company Number: JP-BRISTOL-MYERS SQUIBB COMPANY-BMS-2021-019550

PATIENT
  Sex: Male

DRUGS (1)
  1. YERVOY [Suspect]
     Active Substance: IPILIMUMAB
     Indication: METASTASES TO LUNG
     Route: 041

REACTIONS (7)
  - Depressed level of consciousness [Unknown]
  - Adrenocortical insufficiency acute [Unknown]
  - Fulminant type 1 diabetes mellitus [Unknown]
  - Pneumonia aspiration [Unknown]
  - Immune-mediated hepatitis [Unknown]
  - Adrenocorticotropic hormone deficiency [Unknown]
  - Hyponatraemia [Unknown]
